FAERS Safety Report 13994845 (Version 2)
Quarter: 2017Q4

REPORT INFORMATION
  Report Type: Report from Study
  Country: JP (occurrence: JP)
  Receive Date: 20170921
  Receipt Date: 20171208
  Transmission Date: 20180321
  Serious: Yes (Hospitalization)
  Sender: FDA-Public Use
  Company Number: JP-ALXN-A201706900AA

PATIENT
  Age: 45 Year
  Sex: Male
  Weight: 58 kg

DRUGS (2)
  1. SOLIRIS [Suspect]
     Active Substance: ECULIZUMAB
     Indication: PAROXYSMAL NOCTURNAL HAEMOGLOBINURIA
     Dosage: 600 MG, UNK
     Route: 042
     Dates: start: 20150122, end: 20150212
  2. SOLIRIS [Suspect]
     Active Substance: ECULIZUMAB
     Dosage: 900 MG, DAILY
     Route: 042
     Dates: start: 20150219

REACTIONS (5)
  - Inappropriate schedule of drug administration [Unknown]
  - Tympanic membrane perforation [Recovered/Resolved]
  - Gastroenteritis [Recovered/Resolved]
  - Rhinitis allergic [Recovered/Resolved]
  - Musculoskeletal stiffness [Recovered/Resolved]

NARRATIVE: CASE EVENT DATE: 20160705
